FAERS Safety Report 19120654 (Version 1)
Quarter: 2021Q2

REPORT INFORMATION
  Report Type: Spontaneous
  Country: US (occurrence: US)
  Receive Date: 20210412
  Receipt Date: 20210412
  Transmission Date: 20210717
  Serious: Yes (Hospitalization)
  Sender: FDA-Public Use
  Company Number: None

PATIENT
  Age: 88 Year
  Sex: Male
  Weight: 48 kg

DRUGS (4)
  1. VANCOMYCIN (VANCOMYCIN 5MG/ML/DEXTROSE 5% INJ, BAG,250ML) [Suspect]
     Active Substance: VANCOMYCIN HYDROCHLORIDE
     Indication: PELVIC ABSCESS
     Dates: start: 20201130, end: 20201202
  2. DAPTOMYCIN (DAPTOMYCIN 500MG/VIL INJ) [Suspect]
     Active Substance: DAPTOMYCIN
     Indication: PELVIC ABSCESS
     Route: 048
     Dates: start: 20201203, end: 20201225
  3. DAPTOMYCIN (DAPTOMYCIN 500MG/VIL INJ) [Suspect]
     Active Substance: DAPTOMYCIN
     Indication: STAPHYLOCOCCAL INFECTION
     Route: 048
     Dates: start: 20201203, end: 20201225
  4. VANCOMYCIN (VANCOMYCIN 5MG/ML/DEXTROSE 5% INJ, BAG,250ML) [Suspect]
     Active Substance: VANCOMYCIN HYDROCHLORIDE
     Indication: STAPHYLOCOCCAL INFECTION
     Dates: start: 20201130, end: 20201202

REACTIONS (4)
  - Pulmonary fibrosis [None]
  - Pulmonary toxicity [None]
  - Respiratory failure [None]
  - Condition aggravated [None]

NARRATIVE: CASE EVENT DATE: 20201222
